FAERS Safety Report 7961724-2 (Version None)
Quarter: 2011Q4

REPORT INFORMATION
  Report Type: 
  Country: None (occurrence: None)
  Receive Date: 20111207
  Receipt Date: 20111201
  Transmission Date: 20120403
  Serious: Yes (Other)
  Sender: FDA-Public Use
  Company Number: CN-PFIZER INC-2011287899

PATIENT
  Age: 21 Year
  Sex: Female

DRUGS (3)
  1. CLINDAMYCIN PHOSPHATE [Suspect]
     Indication: HYPERPYREXIA
     Dosage: 0.6G ONCE DAILY
     Route: 041
     Dates: start: 19970701, end: 19970701
  2. CLINDAMYCIN HCL [Suspect]
     Indication: HYPERPYREXIA
     Dosage: 0.3G, DAILY
     Route: 048
     Dates: start: 19970701, end: 19970701
  3. ASCORBIC ACID [Concomitant]
     Indication: HYPERPYREXIA
     Dosage: UNK
     Route: 041
     Dates: start: 19970701

REACTIONS (2)
  - HEPATITIS [None]
  - DRUG ERUPTION [None]
